FAERS Safety Report 5912864-0 (Version None)
Quarter: 2008Q4

REPORT INFORMATION
  Report Type: 
  Country: None (occurrence: None)
  Receive Date: 20081003
  Receipt Date: 20080925
  Transmission Date: 20090506
  Serious: Yes (Life-Threatening, Hospitalization)
  Sender: FDA-Public Use
  Company Number: GXKR2008MX09215

PATIENT
  Age: 79 Year
  Sex: Female

DRUGS (2)
  1. TIMOLOL MALEATE [Suspect]
     Dosage: OPHTHALMIC
     Route: 047
  2. AZITHROMYCIN [Concomitant]

REACTIONS (3)
  - ANGIOEDEMA [None]
  - DYSPNOEA [None]
  - THERAPEUTIC RESPONSE DECREASED [None]
